FAERS Safety Report 7600364-1 (Version None)
Quarter: 2011Q3

REPORT INFORMATION
  Report Type: 
  Country: None (occurrence: None)
  Receive Date: 20110711
  Receipt Date: 20110628
  Transmission Date: 20111222
  Serious: Yes (Hospitalization, Other)
  Sender: FDA-Public Use
  Company Number: US-ELI_LILLY_AND_COMPANY-US201106000498

PATIENT
  Sex: Female
  Weight: 45.351 kg

DRUGS (4)
  1. FORTEO [Suspect]
     Dosage: 20 UG, QD
     Route: 058
     Dates: start: 20101201, end: 20110517
  2. PAROXETINE HCL [Concomitant]
  3. CALCIUM WITH VITAMIN D             /00944201/ [Concomitant]
  4. SYNTHROID [Concomitant]

REACTIONS (2)
  - FALL [None]
  - HIP FRACTURE [None]
